FAERS Safety Report 7447017-0 (Version None)
Quarter: 2011Q2

REPORT INFORMATION
  Report Type: 
  Country: None (occurrence: None)
  Receive Date: 20110429
  Receipt Date: 20110419
  Transmission Date: 20111010
  Serious: Yes (Hospitalization)
  Sender: FDA-Public Use
  Company Number: US-US-EMD SERONO, INC.-7054800

PATIENT
  Sex: Female
  Weight: 135 kg

DRUGS (2)
  1. REBIF [Suspect]
     Indication: MULTIPLE SCLEROSIS
     Route: 058
     Dates: start: 20110309
  2. NAPROXEN [Concomitant]
     Indication: ABNORMAL SENSATION IN EYE

REACTIONS (2)
  - MULTIPLE SCLEROSIS RELAPSE [None]
  - HYPERTENSION [None]
